FAERS Safety Report 7861009-9 (Version None)
Quarter: 2011Q4

REPORT INFORMATION
  Report Type: 
  Country: None (occurrence: None)
  Receive Date: 20111027
  Receipt Date: 20111018
  Transmission Date: 20120403
  Serious: Yes (Congenital Anomaly)
  Sender: FDA-Public Use
  Company Number: US-GLAXOSMITHKLINE-A0950548A

PATIENT

DRUGS (1)
  1. PAXIL [Suspect]
     Indication: PRODUCT USED FOR UNKNOWN INDICATION
     Route: 064

REACTIONS (7)
  - VENA CAVA THROMBOSIS [None]
  - MATERNAL EXPOSURE DURING PREGNANCY [None]
  - MATERNAL DRUGS AFFECTING FOETUS [None]
  - GASTROOESOPHAGEAL REFLUX DISEASE [None]
  - STRABISMUS [None]
  - CONGENITAL CARDIOVASCULAR ANOMALY [None]
  - BRONCHOPULMONARY DYSPLASIA [None]
